FAERS Safety Report 16697177 (Version 2)
Quarter: 2019Q3

REPORT INFORMATION
  Report Type: Spontaneous
  Country: US (occurrence: US)
  Receive Date: 20190813
  Receipt Date: 20190830
  Transmission Date: 20191004
  Serious: No
  Sender: FDA-Public Use
  Company Number: US-PFIZER INC-2019342188

PATIENT
  Age: 63 Year
  Sex: Female
  Weight: 68.94 kg

DRUGS (16)
  1. PRAVASTATIN. [Concomitant]
     Active Substance: PRAVASTATIN
     Dosage: 40 MG, DAILY (TAKE 1 TABLET BY ORAL ROUTE EVERY DAY)
     Route: 048
  2. CALCIUM 600 + D3 PLUS MINERALS [Concomitant]
     Dosage: 600 MG, UNK
  3. GLUCOSAMINE 1500 COMPLEX ADVANCED [Concomitant]
     Dosage: UNK UNK, 2X/DAY (500 MG-400 MG CAPSULE 2 TWICE A DAY)
  4. XELJANZ [Suspect]
     Active Substance: TOFACITINIB CITRATE
     Dosage: 5 MG, UNK
  5. METOPROLOL SUCCINATE. [Concomitant]
     Active Substance: METOPROLOL SUCCINATE
     Dosage: 50 MG, DAILY (TAKE 1 TABLET BY ORAL ROUTE EVERY DAY)
     Route: 048
  6. MELOXICAM. [Concomitant]
     Active Substance: MELOXICAM
     Dosage: UNK, AS NEEDED (AS NEEDED FOR PAIN)
  7. ALENDRONATE [Concomitant]
     Active Substance: ALENDRONATE SODIUM
     Dosage: 70 MG, WEEKLY (TAKE 1 TABLET BY MOUTH ONCE A WEEK 30 MINUTES PRIOR TO BREAKFAST.DO NOT LAY DOWN)
     Route: 048
     Dates: start: 20190613
  8. ASPIRIN 81 [Concomitant]
     Active Substance: ASPIRIN
     Dosage: 81 MG, DAILY ,(CHEW 1 TABLET BY ORAL ROUTE EVERY DAY)
     Route: 048
  9. MELOXICAM. [Concomitant]
     Active Substance: MELOXICAM
     Indication: PAIN
     Dosage: 15 MG, 1X/DAY
     Route: 048
     Dates: start: 20190715
  10. XELJANZ [Suspect]
     Active Substance: TOFACITINIB CITRATE
     Dosage: 5 MG, 2X/DAY
     Route: 048
     Dates: start: 20181227
  11. HYDROCHLOROTHIAZIDE. [Concomitant]
     Active Substance: HYDROCHLOROTHIAZIDE
     Dosage: 25 MG, DAILY (TAKE 1 TABLET BY ORAL ROUTE EVERY DAY)
     Route: 048
  12. TIZANIDINE. [Concomitant]
     Active Substance: TIZANIDINE
     Dosage: UNK UNK, 2X/DAY (TAKE 1-2 TAB BY MOUTH BID (TWICE A DAY))
     Dates: start: 20180802
  13. TYLENOL WITH CODEINE [Concomitant]
     Active Substance: ACETAMINOPHEN\CODEINE PHOSPHATE
     Dosage: 1 DF, AS NEEDED (TYLENOL-CODEINE #4 300MG-60MG TABLET; 1 TAB PO THRICE A DAY AS NEEDED)
     Route: 048
     Dates: start: 20190501, end: 20190814
  14. TYLENOL [Concomitant]
     Active Substance: ACETAMINOPHEN
     Indication: PAIN
     Dosage: UNK
     Route: 042
  15. CALCIUM [Concomitant]
     Active Substance: CALCIUM
     Dosage: 50 MG, UNK
  16. VITAMIN D3 [Concomitant]
     Active Substance: CHOLECALCIFEROL
     Dosage: UNK, 1X/DAY (2,000 UNIT CAPSULE)

REACTIONS (1)
  - Gait disturbance [Unknown]
